FAERS Safety Report 19118726 (Version 2)
Quarter: 2021Q2

REPORT INFORMATION
  Report Type: Spontaneous
  Country: CA (occurrence: CA)
  Receive Date: 20210409
  Receipt Date: 20210414
  Transmission Date: 20210717
  Serious: Yes (Death)
  Sender: FDA-Public Use
  Company Number: CA-ROCHE-2807868

PATIENT
  Age: 67 Year
  Sex: Male

DRUGS (1)
  1. XOLAIR [Suspect]
     Active Substance: OMALIZUMAB
     Indication: ASTHMA
     Dosage: 225.0 MG, Q4W (1 EVERY 4 WEEKS)
     Route: 058

REACTIONS (3)
  - Cough [Unknown]
  - Pyrexia [Unknown]
  - Death [Fatal]
